FAERS Safety Report 6769730-0 (Version None)
Quarter: 2010Q2

REPORT INFORMATION
  Report Type: 
  Country: None (occurrence: None)
  Receive Date: 20100615
  Receipt Date: 20100603
  Transmission Date: 20101027
  Serious: Yes (Other)
  Sender: FDA-Public Use
  Company Number: PHHY2010AU36148

PATIENT
  Sex: Male

DRUGS (2)
  1. VOLTAREN [Suspect]
     Dosage: 1 DF, ONCE/SINGLE
     Route: 040
  2. DIGOXIN [Concomitant]
     Indication: CARDIAC FAILURE

REACTIONS (6)
  - BLOOD PRESSURE DECREASED [None]
  - ERYTHEMA [None]
  - HEADACHE [None]
  - PERIPHERAL CIRCULATORY FAILURE [None]
  - PRURITUS GENERALISED [None]
  - VISION BLURRED [None]
